FAERS Safety Report 5995847-4 (Version None)
Quarter: 2008Q4

REPORT INFORMATION
  Report Type: 
  Country: None (occurrence: None)
  Receive Date: 20081212
  Receipt Date: 20081203
  Transmission Date: 20090506
  Serious: Yes (Hospitalization)
  Sender: FDA-Public Use
  Company Number: FR-B.I. PHARMACEUTICALS,INC./RIDGEFIELD-2008-FF-00870FF

PATIENT
  Sex: Male

DRUGS (11)
  1. ATROVENT [Suspect]
     Dates: start: 20080621, end: 20080625
  2. LASIX [Concomitant]
     Dates: start: 20080620, end: 20080624
  3. MUCOMYST [Concomitant]
     Dates: start: 20080621, end: 20080625
  4. ZOCOR [Concomitant]
     Indication: DYSLIPIDAEMIA
     Route: 048
  5. GLUCOPHAGE [Concomitant]
     Indication: TYPE 2 DIABETES MELLITUS
  6. AMARYL [Concomitant]
     Indication: TYPE 2 DIABETES MELLITUS
  7. CIBACENE [Concomitant]
     Indication: HYPERTENSION
  8. APROVEL [Concomitant]
     Indication: HYPERTENSION
  9. ISOPTIN SR [Concomitant]
     Indication: HYPERTENSION
  10. KARDEGIC [Concomitant]
     Indication: JOINT PROSTHESIS USER
  11. PREVISCAN [Concomitant]
     Indication: PULMONARY EMBOLISM

REACTIONS (1)
  - CYTOLYTIC HEPATITIS [None]
